FAERS Safety Report 6329828-8 (Version None)
Quarter: 2009Q3

REPORT INFORMATION
  Report Type: 
  Country: None (occurrence: None)
  Receive Date: 20090826
  Receipt Date: 20090519
  Transmission Date: 20100115
  Serious: No
  Sender: FDA-Public Use
  Company Number: US-ALLERGAN-0907050US

PATIENT
  Sex: Female

DRUGS (3)
  1. ACZONE GEL 5% [Suspect]
     Indication: ACNE
     Route: 061
  2. VEDA [Concomitant]
  3. DESONIDE/SALICYLIC ACID [Concomitant]

REACTIONS (1)
  - ACNE [None]
